FAERS Safety Report 8264695-7 (Version None)
Quarter: 2012Q2

REPORT INFORMATION
  Report Type: 
  Country: None (occurrence: None)
  Receive Date: 20120404
  Receipt Date: 20120319
  Transmission Date: 20120825
  Serious: Yes (Other)
  Sender: FDA-Public Use
  Company Number: 2012P1010413

PATIENT
  Age: 34 Year
  Sex: Male

DRUGS (1)
  1. CARISOPRODOL (NO PREF. NAME) [Suspect]

REACTIONS (12)
  - INCORRECT ROUTE OF DRUG ADMINISTRATION [None]
  - CARDIAC MURMUR [None]
  - TRICUSPID VALVE INCOMPETENCE [None]
  - DYSPNOEA AT REST [None]
  - PULMONARY HYPERTENSION [None]
  - PULMONARY EMBOLISM [None]
  - REFUSAL OF TREATMENT BY PATIENT [None]
  - WRONG TECHNIQUE IN DRUG USAGE PROCESS [None]
  - ELECTROCARDIOGRAM T WAVE INVERSION [None]
  - JUGULAR VEIN DISTENSION [None]
  - DILATATION VENTRICULAR [None]
  - SI QIII TIII PATTERN [None]
